FAERS Safety Report 7373284-8 (Version None)
Quarter: 2011Q1

REPORT INFORMATION
  Report Type: 
  Country: None (occurrence: None)
  Receive Date: 20110324
  Receipt Date: 20110316
  Transmission Date: 20110831
  Serious: Yes (Death)
  Sender: FDA-Public Use
  Company Number: US-GILEAD-2011-0037348

PATIENT
  Sex: Female

DRUGS (3)
  1. LETAIRIS [Suspect]
     Indication: PULMONARY HYPERTENSION
     Route: 048
     Dates: start: 20110119, end: 20110224
  2. LETAIRIS [Suspect]
     Indication: HEART DISEASE CONGENITAL
  3. LETAIRIS [Suspect]
     Indication: HIV INFECTION

REACTIONS (1)
  - MYOCARDIAL INFARCTION [None]
